FAERS Safety Report 5933739-7 (Version None)
Quarter: 2008Q4

REPORT INFORMATION
  Report Type: 
  Country: None (occurrence: None)
  Receive Date: 20081029
  Receipt Date: 20081021
  Transmission Date: 20090506
  Serious: Yes (Disabling, Other)
  Sender: FDA-Public Use
  Company Number: US-ROCHE-587843

PATIENT
  Sex: Male
  Weight: 99.8 kg

DRUGS (8)
  1. PEGASYS [Suspect]
     Route: 058
     Dates: start: 20080115, end: 20080715
  2. QVAR 40 [Concomitant]
  3. GEODON [Concomitant]
  4. GEODON [Concomitant]
  5. ZYPREXA [Concomitant]
  6. CLONAZEPAM [Concomitant]
  7. BENZOTROPINE [Concomitant]
  8. ALOE VERA [Concomitant]

REACTIONS (2)
  - PARANOIA [None]
  - PSYCHOTIC DISORDER [None]
